FAERS Safety Report 7420686-7 (Version None)
Quarter: 2011Q2

REPORT INFORMATION
  Report Type: 
  Country: None (occurrence: None)
  Receive Date: 20110418
  Receipt Date: 20110321
  Transmission Date: 20111010
  Serious: Yes (Hospitalization, Other)
  Sender: FDA-Public Use
  Company Number: US-BAYER-2010-002123

PATIENT
  Age: 21 Year
  Sex: Female
  Weight: 55.782 kg

DRUGS (6)
  1. TOPROL-XL [Concomitant]
  2. ZOLOFT [Concomitant]
     Dosage: 100 MG, QD
     Dates: start: 20070101
  3. YAZ [Suspect]
     Indication: PRODUCT USED FOR UNKNOWN INDICATION
  4. FLUDROCORTISONE [Concomitant]
     Dosage: UNK
     Dates: start: 20060101, end: 20100101
  5. VERAPAMIL SLOW RELEASE [Concomitant]
     Dosage: 180 MG, QD
     Dates: start: 20070101
  6. FLECAINIDE ACETATE [Concomitant]
     Dosage: 50 MG, BID
     Dates: start: 20070401

REACTIONS (4)
  - POSTURAL ORTHOSTATIC TACHYCARDIA SYNDROME [None]
  - MYOCARDIAL INFARCTION [None]
  - ARRHYTHMIA [None]
  - HEART RATE IRREGULAR [None]
